FAERS Safety Report 20157262 (Version 2)
Quarter: 2022Q1

REPORT INFORMATION
  Report Type: Spontaneous
  Country: GR (occurrence: GR)
  Receive Date: 20211207
  Receipt Date: 20220106
  Transmission Date: 20220423
  Serious: Yes (Other)
  Sender: FDA-Public Use
  Company Number: GR-PFIZER INC-202101468206

PATIENT
  Age: 82 Year
  Sex: Female

DRUGS (7)
  1. COMIRNATY [Suspect]
     Active Substance: TOZINAMERAN
     Indication: COVID-19 immunisation
     Dosage: DOSE 2, SINGLE
     Dates: start: 202104, end: 202104
  2. COMIRNATY [Suspect]
     Active Substance: TOZINAMERAN
     Dosage: DOSE 1, SINGLE
     Dates: start: 202103, end: 202103
  3. NEURONTIN [Suspect]
     Active Substance: GABAPENTIN
     Indication: Nervous system disorder
     Dosage: 300 MG, 1X/DAY (EVERY EVENING)
  4. EZETIMIBE\SIMVASTATIN [Suspect]
     Active Substance: EZETIMIBE\SIMVASTATIN
     Indication: Blood cholesterol abnormal
     Dosage: UNK
  5. EZETIMIBE\SIMVASTATIN [Suspect]
     Active Substance: EZETIMIBE\SIMVASTATIN
     Indication: Blood triglycerides abnormal
  6. PERINDOPRIL ARGININE [Concomitant]
     Active Substance: PERINDOPRIL ARGININE
     Dosage: 5 MG
  7. BISOPROLOL FUMARATE [Concomitant]
     Active Substance: BISOPROLOL FUMARATE
     Dosage: 2.5 MG (HALF OF 5 MG), 2X/DAY (HALF IN THE MORNING AND HALF IN THE AFTERNOON)

REACTIONS (12)
  - Rhabdomyolysis [Unknown]
  - Angina pectoris [Unknown]
  - Drug ineffective [Unknown]
  - Muscle hernia [Unknown]
  - Muscle spasms [Unknown]
  - Back pain [Unknown]
  - Pain in extremity [Unknown]
  - Muscle disorder [Unknown]
  - Spinal pain [Unknown]
  - Arthralgia [Unknown]
  - Muscle spasms [Unknown]
  - Fall [Unknown]
